FAERS Safety Report 21575891 (Version 6)
Quarter: 2023Q1

REPORT INFORMATION
  Report Type: Report from Study
  Country: US (occurrence: US)
  Receive Date: 20221110
  Receipt Date: 20230329
  Transmission Date: 20230417
  Serious: Yes (Other)
  Sender: FDA-Public Use
  Company Number: US-002147023-NVSC2022US251600

PATIENT
  Age: 53 Year
  Sex: Female

DRUGS (1)
  1. COSENTYX [Suspect]
     Active Substance: SECUKINUMAB
     Indication: Psoriasis
     Dosage: UNK, QMO
     Route: 058
     Dates: start: 20221012

REACTIONS (7)
  - Neuropathy peripheral [Unknown]
  - Skin ulcer [Unknown]
  - Paraesthesia [Unknown]
  - Scratch [Unknown]
  - Feeling abnormal [Unknown]
  - Pain in extremity [Recovering/Resolving]
  - Pain of skin [Unknown]

NARRATIVE: CASE EVENT DATE: 20221026
